FAERS Safety Report 6321206-0 (Version None)
Quarter: 2009Q3

REPORT INFORMATION
  Report Type: 
  Country: None (occurrence: None)
  Receive Date: 20090822
  Receipt Date: 20090102
  Transmission Date: 20100115
  Serious: No
  Sender: FDA-Public Use
  Company Number: US-ABBOTT-09P-163-0495901-00

PATIENT
  Sex: Male

DRUGS (11)
  1. NIASPAN [Suspect]
     Indication: DRUG USE FOR UNKNOWN INDICATION
     Dates: start: 20081219
  2. METOPROLOL [Concomitant]
     Indication: DRUG USE FOR UNKNOWN INDICATION
  3. CRESTOR [Concomitant]
     Indication: DRUG USE FOR UNKNOWN INDICATION
  4. HYDROCHLOROTHIAZIDE [Concomitant]
     Indication: DRUG USE FOR UNKNOWN INDICATION
  5. ASPIRIN [Concomitant]
     Indication: DRUG USE FOR UNKNOWN INDICATION
  6. FISH OIL [Concomitant]
     Indication: DRUG USE FOR UNKNOWN INDICATION
  7. LEXAPRO [Concomitant]
     Indication: DRUG USE FOR UNKNOWN INDICATION
  8. GLUCOPHAGE [Concomitant]
     Indication: DRUG USE FOR UNKNOWN INDICATION
  9. VITAMIN B-12 [Concomitant]
     Indication: DRUG USE FOR UNKNOWN INDICATION
  10. COQ10 [Concomitant]
     Indication: DRUG USE FOR UNKNOWN INDICATION
  11. NEXIUM [Concomitant]
     Indication: DRUG USE FOR UNKNOWN INDICATION

REACTIONS (5)
  - FLUSHING [None]
  - PARAESTHESIA [None]
  - RASH PAPULAR [None]
  - RASH PRURITIC [None]
  - URTICARIA [None]
